FAERS Safety Report 7104635-7 (Version None)
Quarter: 2010Q4

REPORT INFORMATION
  Report Type: 
  Country: None (occurrence: None)
  Receive Date: 20101109
  Receipt Date: 20101027
  Transmission Date: 20110411
  Serious: Yes (Life-Threatening)
  Sender: FDA-Public Use
  Company Number: TR-004050

PATIENT
  Age: 42 Year
  Sex: Female

DRUGS (2)
  1. UROFOLLITROPIN (FOLLICLES STIMULATED HORMONE) [Suspect]
     Indication: IN VITRO FERTILISATION
  2. HCG (CHORIONGONADOTROPHIN) [Suspect]
     Indication: IN VITRO FERTILISATION

REACTIONS (6)
  - APHASIA [None]
  - CEREBRAL VENOUS THROMBOSIS [None]
  - CONFUSIONAL STATE [None]
  - GRAND MAL CONVULSION [None]
  - HAEMORRHAGIC CEREBRAL INFARCTION [None]
  - OVARIAN HYPERSTIMULATION SYNDROME [None]
